FAERS Safety Report 17090621 (Version 2)
Quarter: 2020Q4

REPORT INFORMATION
  Report Type: Report from Study
  Country: None (occurrence: CA)
  Receive Date: 20191129
  Receipt Date: 20201020
  Transmission Date: 20210113
  Serious: Yes (Hospitalization)
  Sender: FDA-Public Use
  Company Number: CA-ABBVIE-19K-028-2984075-00

PATIENT
  Sex: Female

DRUGS (1)
  1. HUMIRA [Suspect]
     Active Substance: ADALIMUMAB
     Indication: CROHN^S DISEASE
     Route: 058
     Dates: start: 20060410, end: 20191101

REACTIONS (11)
  - Skin ulcer [Unknown]
  - Crohn^s disease [Not Recovered/Not Resolved]
  - Skin laceration [Not Recovered/Not Resolved]
  - Tongue injury [Not Recovered/Not Resolved]
  - Pain of skin [Unknown]
  - Lower limb fracture [Unknown]
  - Fall [Recovered/Resolved]
  - Fistula [Unknown]
  - Papule [Not Recovered/Not Resolved]
  - Malaise [Not Recovered/Not Resolved]
  - Pain [Not Recovered/Not Resolved]

NARRATIVE: CASE EVENT DATE: 2017
